FAERS Safety Report 9496416 (Version 2)
Quarter: 2013Q4

REPORT INFORMATION
  Report Type: Spontaneous
  Country: IT (occurrence: IT)
  Receive Date: 20130904
  Receipt Date: 20131016
  Transmission Date: 20140711
  Serious: Yes (Hospitalization)
  Sender: FDA-Public Use
  Company Number: PHHY2013IT088787

PATIENT
  Sex: Female

DRUGS (4)
  1. LEVOFLOXACIN [Interacting]
     Dosage: 500 MG, QD
     Route: 048
     Dates: start: 20130801, end: 20130812
  2. KCL-RETARD [Concomitant]
  3. FERRO-GRAD [Concomitant]
  4. METFORMIN [Suspect]
     Indication: DIABETES MELLITUS
     Dosage: 1000 MG, QD
     Route: 048
     Dates: start: 20120101, end: 20130812

REACTIONS (1)
  - Hypoglycaemia [Recovered/Resolved]
